FAERS Safety Report 4825436-6 (Version None)
Quarter: 2005Q4

REPORT INFORMATION
  Report Type: 
  Country: None (occurrence: None)
  Receive Date: 20051109
  Receipt Date: 20051025
  Transmission Date: 20060501
  Serious: Yes (Hospitalization)
  Sender: FDA-Public Use
  Company Number: DSA_27320_2005

PATIENT
  Age: 69 Year
  Sex: Female

DRUGS (4)
  1. TAVOR [Suspect]
     Dosage: 1 MG BID PO
     Route: 048
  2. ERGENYL CHRONO [Suspect]
     Dosage: 600 MG PO
     Route: 048
  3. LAMICTAL [Suspect]
     Dosage: 400 MG PO
     Route: 048
  4. ZYPREXA [Suspect]
     Dosage: 5 MG Q DAY PO
     Route: 048

REACTIONS (2)
  - AGITATION [None]
  - RESTLESSNESS [None]
